FAERS Safety Report 7286566-5 (Version None)
Quarter: 2011Q1

REPORT INFORMATION
  Report Type: 
  Country: None (occurrence: None)
  Receive Date: 20110210
  Receipt Date: 20110209
  Transmission Date: 20110831
  Serious: Yes (Hospitalization)
  Sender: FDA-Public Use
  Company Number: US-ABBOTT-11P-163-0694988-00

PATIENT
  Sex: Male

DRUGS (1)
  1. ERYTHROMYCIN STEARATE [Suspect]
     Indication: PRODUCT USED FOR UNKNOWN INDICATION
     Dates: start: 19860101, end: 19860101

REACTIONS (2)
  - CHOLANGITIS SCLEROSING [None]
  - JAUNDICE [None]
